FAERS Safety Report 11745418 (Version 1)
Quarter: 2015Q4

REPORT INFORMATION
  Report Type: Spontaneous
  Country: US (occurrence: None)
  Receive Date: 20151116
  Receipt Date: 20151116
  Transmission Date: 20160304
  Serious: No
  Sender: FDA-Public Use
  Company Number: None

PATIENT
  Age: 65 Year
  Sex: Female

DRUGS (1)
  1. HUMIRA [Suspect]
     Active Substance: ADALIMUMAB
     Indication: RHEUMATOID ARTHRITIS
     Dosage: 40 MG, Q14DAYS
     Route: 058
     Dates: start: 20151010, end: 20151010

REACTIONS (3)
  - Rash [None]
  - Injection site urticaria [None]
  - Urticaria [None]

NARRATIVE: CASE EVENT DATE: 20151010
